FAERS Safety Report 5325013-7 (Version None)
Quarter: 2007Q2

REPORT INFORMATION
  Report Type: 
  Country: None (occurrence: None)
  Receive Date: 20070515
  Receipt Date: 20070509
  Transmission Date: 20071010
  Serious: Yes (Other)
  Sender: FDA-Public Use
  Company Number: GB-JNJFOC-20070502964

PATIENT
  Age: 16 Year
  Sex: Female
  Weight: 61 kg

DRUGS (6)
  1. RISPERIDONE [Suspect]
     Indication: AFFECTIVE DISORDER
     Route: 048
  2. RISPERIDONE [Suspect]
     Indication: IRRITABILITY
     Route: 048
  3. ORAL CONTRACEPTIVE [Concomitant]
     Route: 048
  4. PROZAC [Concomitant]
     Indication: DEPRESSION
     Route: 048
  5. METHYLPHENIDATE HCL [Concomitant]
     Indication: ATTENTION DEFICIT/HYPERACTIVITY DISORDER
     Route: 048
  6. EQUASYM [Concomitant]
     Indication: ATTENTION DEFICIT/HYPERACTIVITY DISORDER
     Route: 048

REACTIONS (2)
  - DYSTONIA [None]
  - TIC [None]
